FAERS Safety Report 4539595-6 (Version None)
Quarter: 2004Q4

REPORT INFORMATION
  Report Type: 
  Country: None (occurrence: None)
  Receive Date: 20041228
  Receipt Date: 20041208
  Transmission Date: 20050328
  Serious: Yes (Other)
  Sender: FDA-Public Use
  Company Number: PHBS2004JP16532

PATIENT
  Age: 34 Year
  Sex: Female

DRUGS (6)
  1. CARBAMAZEPINE [Suspect]
     Indication: TEMPORAL LOBE EPILEPSY
     Dosage: 400 MG/DAY
  2. CLOBAZAM [Suspect]
     Indication: TEMPORAL LOBE EPILEPSY
     Dosage: 10 MG/DAY
  3. CLOBAZAM [Suspect]
     Dosage: 18 MG/DAY
  4. CLOBAZAM [Suspect]
     Dosage: 20 MG/DAY
  5. VALPROATE SODIUM [Concomitant]
     Indication: TEMPORAL LOBE EPILEPSY
     Dosage: 900 MG/DAY
  6. VALPROATE SODIUM [Concomitant]
     Dosage: 800 MG/DAY

REACTIONS (3)
  - EXCITABILITY [None]
  - INSOMNIA [None]
  - IRRITABILITY [None]
